FAERS Safety Report 10307943 (Version 1)
Quarter: 2014Q3

REPORT INFORMATION
  Report Type: Spontaneous
  Country: US (occurrence: None)
  Receive Date: 20140714
  Receipt Date: 20140714
  Transmission Date: 20150326
  Serious: Yes (Other)
  Sender: FDA-Public Use
  Company Number: None

PATIENT
  Age: 57 Year
  Sex: Female

DRUGS (4)
  1. NUTRAMETRIX [Concomitant]
  2. TRESKIN CREAM [Concomitant]
  3. AUGMENTIN [Suspect]
     Active Substance: AMOXICILLIN\CLAVULANATE POTASSIUM
     Indication: SINUSITIS
     Dates: start: 20130225, end: 20130311
  4. MEDROL DOSE PAK (WITH THE AUGMENTIN) [Concomitant]

REACTIONS (6)
  - Protein urine present [None]
  - Drug-induced liver injury [None]
  - Nausea [None]
  - Cholestasis [None]
  - Thirst [None]
  - Jaundice [None]

NARRATIVE: CASE EVENT DATE: 20130324
